FAERS Safety Report 5534001-7 (Version None)
Quarter: 2007Q4

REPORT INFORMATION
  Report Type: 
  Country: None (occurrence: None)
  Receive Date: 20071130
  Receipt Date: 20071119
  Transmission Date: 20080405
  Serious: Yes (Other)
  Sender: FDA-Public Use
  Company Number: DSA_30921_2007

PATIENT
  Sex: Female
  Weight: 106.5953 kg

DRUGS (6)
  1. CARDIZEM [Suspect]
     Indication: TACHYCARDIA
     Dosage: 120 MG QD ORAL
     Route: 048
     Dates: start: 20071001, end: 20071104
  2. PERCOCET [Suspect]
     Indication: BACK PAIN
     Dosage: 10 MG/325 MG, FOUR TABLETS PRN ORAL
     Route: 048
     Dates: start: 20060101, end: 20071104
  3. OPANA ER [Suspect]
     Indication: BACK PAIN
     Dosage: DF ORAL
     Route: 048
     Dates: start: 20071106, end: 20071113
  4. LYRICA [Concomitant]
  5. ZANAPLEX [Concomitant]
  6. KLONOPIN [Concomitant]

REACTIONS (6)
  - ABDOMINAL PAIN [None]
  - HEADACHE [None]
  - NAUSEA [None]
  - PRURITUS [None]
  - URTICARIA [None]
  - WHEEZING [None]
